FAERS Safety Report 8478518-4 (Version None)
Quarter: 2012Q2

REPORT INFORMATION
  Report Type: 
  Country: None (occurrence: None)
  Receive Date: 20120629
  Receipt Date: 20120619
  Transmission Date: 20120825
  Serious: Yes (Hospitalization)
  Sender: FDA-Public Use
  Company Number: IT-ELI_LILLY_AND_COMPANY-IT201206002166

PATIENT
  Sex: Female

DRUGS (12)
  1. SIMVASTATIN [Concomitant]
     Dosage: UNK MG, UNK
     Route: 048
  2. ENALAPRIL MALEATE [Concomitant]
     Indication: HYPERTENSION
     Dosage: 10 MG, QD
     Route: 048
     Dates: start: 20080101, end: 20120527
  3. LEVOTHYROXINE SODIUM [Concomitant]
  4. MODURETIC 5-50 [Concomitant]
  5. CHLORDESMETHYLDIAZEPAM [Concomitant]
     Route: 048
  6. PLAVIX [Concomitant]
  7. RANITIDINE HCL [Concomitant]
  8. ENOXAPARIN SODIUM [Concomitant]
  9. DEURSIL [Concomitant]
  10. HUMALOG [Suspect]
     Indication: DIABETES MELLITUS
     Dosage: 10 DF, QD
     Route: 058
     Dates: start: 20080101
  11. LANTUS [Concomitant]
     Indication: DIABETES MELLITUS
     Dosage: 22 DF, QD
     Route: 058
     Dates: start: 20080101
  12. ZOLOFT [Concomitant]

REACTIONS (3)
  - RENAL FAILURE ACUTE [None]
  - HYPOGLYCAEMIA [None]
  - HYPERKALAEMIA [None]
